FAERS Safety Report 6937804-7 (Version None)
Quarter: 2010Q3

REPORT INFORMATION
  Report Type: 
  Country: None (occurrence: None)
  Receive Date: 20100823
  Receipt Date: 20100823
  Transmission Date: 20110219
  Serious: Yes (Other)
  Sender: FDA-Public Use
  Company Number: None

PATIENT
  Age: 66 Year
  Sex: Male
  Weight: 90.9 kg

DRUGS (9)
  1. MULTIHANCE [Suspect]
     Indication: COLON CANCER
     Dosage: 15ML ONCE RIGHT AC-042 2ML/
     Dates: start: 20100819
  2. MULTIHANCE [Suspect]
     Indication: HEPATIC NEOPLASM MALIGNANT
     Dosage: 15ML ONCE RIGHT AC-042 2ML/
     Dates: start: 20100819
  3. ATENOLOL [Concomitant]
  4. FENOFIBRATE [Concomitant]
  5. ANUCORT [Concomitant]
  6. ENOXAPARIN SODIUM [Concomitant]
  7. METFORMIN HCL [Concomitant]
  8. OMEPRAZOLE [Concomitant]
  9. SIMVASTATIN [Concomitant]

REACTIONS (2)
  - CONTRAST MEDIA ALLERGY [None]
  - URTICARIA [None]
